FAERS Safety Report 24340226 (Version 2)
Quarter: 2024Q4

REPORT INFORMATION
  Report Type: Spontaneous
  Country: US (occurrence: US)
  Receive Date: 20240919
  Receipt Date: 20241008
  Transmission Date: 20250115
  Serious: Yes (Other)
  Sender: BIOGEN
  Company Number: US-BIOGEN-2024BI01257111

PATIENT
  Sex: Male

DRUGS (3)
  1. SKYCLARYS [Suspect]
     Active Substance: OMAVELOXOLONE
     Indication: Friedreich^s ataxia
     Route: 050
     Dates: start: 20240214
  2. SKYCLARYS [Suspect]
     Active Substance: OMAVELOXOLONE
     Route: 050
     Dates: start: 20240214
  3. KEFLEX [Suspect]
     Active Substance: CEPHALEXIN
     Indication: Osteomyelitis
     Route: 050

REACTIONS (6)
  - Osteomyelitis [Unknown]
  - Rotator cuff syndrome [Not Recovered/Not Resolved]
  - Neuropathy peripheral [Unknown]
  - Intentional underdose [Unknown]
  - Drug hypersensitivity [Recovered/Resolved]
  - Precancerous skin lesion [Unknown]

NARRATIVE: CASE EVENT DATE: 20240101
